FAERS Safety Report 4554902-6 (Version None)
Quarter: 2004Q4

REPORT INFORMATION
  Report Type: 
  Country: None (occurrence: None)
  Receive Date: 20041222
  Receipt Date: 20041012
  Transmission Date: 20050328
  Serious: Yes (Hospitalization, Other)
  Sender: FDA-Public Use
  Company Number: 209603

PATIENT
  Age: 73 Year
  Sex: Male

DRUGS (12)
  1. AVASTIN [Suspect]
     Indication: COLON CANCER METASTATIC
     Dosage: 460 MG, Q2W, INTRAVENOUS
     Route: 042
     Dates: start: 20040413, end: 20040526
  2. CAMPTOSAR [Concomitant]
  3. FLUOROURACIL [Concomitant]
  4. LEUCOVORIN CALCIUM [Concomitant]
  5. AREDIA [Concomitant]
  6. OXYCONTIN [Concomitant]
  7. ALDACTONE [Concomitant]
  8. HUMBID (GUAIFENESIN) [Concomitant]
  9. PERCOCET [Concomitant]
  10. MOTOFEN (ATROPINE SULFATE, DIFENOXIN) [Concomitant]
  11. ............. [Concomitant]
  12. ASPIRIN [Concomitant]

REACTIONS (1)
  - TRANSIENT ISCHAEMIC ATTACK [None]
